FAERS Safety Report 9120430 (Version 1)
Quarter: 2013Q1

REPORT INFORMATION
  Report Type: Spontaneous
  Country: MX (occurrence: MX)
  Receive Date: 20130226
  Receipt Date: 20130226
  Transmission Date: 20140127
  Serious: Yes (Life-Threatening, Other)
  Sender: FDA-Public Use
  Company Number: MX-UCBSA-078977

PATIENT
  Age: 79 Year
  Sex: Female
  Weight: 70 kg

DRUGS (6)
  1. NUBRENZA [Suspect]
     Indication: PARKINSON^S DISEASE
     Route: 062
     Dates: start: 20121202, end: 20130208
  2. NUBRENZA [Suspect]
     Indication: PARKINSON^S DISEASE
     Route: 062
     Dates: start: 20130209, end: 20130210
  3. NUBRENZA [Suspect]
     Indication: PARKINSON^S DISEASE
     Route: 062
     Dates: start: 20121006, end: 20121201
  4. ASPIRINA PROTECT [Concomitant]
     Indication: ANTIPLATELET THERAPY
     Route: 048
     Dates: start: 1999
  5. ACLORAL [Concomitant]
     Indication: PROPHYLAXIS AGAINST GASTROINTESTINAL ULCER
     Route: 048
     Dates: start: 1999
  6. MELOX [Concomitant]
     Indication: PROPHYLAXIS AGAINST GASTROINTESTINAL ULCER
     Route: 048
     Dates: start: 1999

REACTIONS (10)
  - Dyskinesia [Recovered/Resolved]
  - Gastrooesophageal reflux disease [Recovered/Resolved]
  - Anxiety [Recovered/Resolved]
  - Hyperhidrosis [Recovered/Resolved]
  - Chest pain [Recovered/Resolved]
  - Hypertensive crisis [Recovered/Resolved]
  - Respiratory arrest [Recovered/Resolved]
  - Respiratory distress [Recovered/Resolved]
  - Abdominal distension [Recovered/Resolved]
  - Fatigue [Not Recovered/Not Resolved]
